FAERS Safety Report 4903632-7 (Version None)
Quarter: 2006Q1

REPORT INFORMATION
  Report Type: 
  Country: None (occurrence: None)
  Receive Date: 20060203
  Receipt Date: 20060125
  Transmission Date: 20060701
  Serious: Yes (Other)
  Sender: FDA-Public Use
  Company Number: 2006-009162

PATIENT
  Sex: Male

DRUGS (4)
  1. TRUVADA [Suspect]
     Indication: HIV INFECTION
  2. EFAVIRENZ [Concomitant]
  3. SEPTRA DS (BACTRIM /00086101/) [Concomitant]
  4. ZITHROMAX [Concomitant]

REACTIONS (4)
  - HEPATITIS B [None]
  - HEPATITIS C [None]
  - LIVER FUNCTION TEST ABNORMAL [None]
  - RENAL FAILURE [None]
